FAERS Safety Report 10669936 (Version 1)
Quarter: 2014Q4

REPORT INFORMATION
  Report Type: Spontaneous
  Country: IT (occurrence: IT)
  Receive Date: 20141223
  Receipt Date: 20141223
  Transmission Date: 20150529
  Serious: Yes (Other)
  Sender: FDA-Public Use
  Company Number: IT-AUROBINDO-AUR-APL-2014-12963

PATIENT
  Age: 60 Year
  Sex: Male

DRUGS (9)
  1. BIVALIRUDIN [Concomitant]
     Active Substance: BIVALIRUDIN
     Indication: ANTICOAGULANT THERAPY
     Dosage: 0.1 MG/KG, UNK
     Route: 040
  2. CLOPIDOGREL [Suspect]
     Active Substance: CLOPIDOGREL BISULFATE
     Indication: ANTIPLATELET THERAPY
     Dosage: 75 MG, ONCE A DAY
     Route: 065
  3. BIVALIRUDIN [Concomitant]
     Active Substance: BIVALIRUDIN
     Indication: ANGIOPLASTY
  4. LYSINE ASPIRIN [Concomitant]
     Active Substance: ASPIRIN DL-LYSINE
     Indication: ANGIOPLASTY
  5. BIVALIRUDIN [Concomitant]
     Active Substance: BIVALIRUDIN
     Indication: ANTIPLATELET THERAPY
     Dosage: 0.25 MG/KG, EVERY HOUR
     Route: 065
  6. LYSINE ASPIRIN [Concomitant]
     Active Substance: ASPIRIN DL-LYSINE
     Indication: ANTICOAGULANT THERAPY
     Dosage: 250 MG, UNK
     Route: 040
  7. LYSINE ASPIRIN [Concomitant]
     Active Substance: ASPIRIN DL-LYSINE
     Indication: ANTIPLATELET THERAPY
  8. CLOPIDOGREL [Suspect]
     Active Substance: CLOPIDOGREL BISULFATE
     Indication: ANTICOAGULANT THERAPY
     Dosage: 300 MG, LOADING DOSE PER OS
     Route: 065
  9. CLOPIDOGREL [Suspect]
     Active Substance: CLOPIDOGREL BISULFATE
     Indication: ANGIOPLASTY

REACTIONS (1)
  - Drug resistance [Unknown]
